FAERS Safety Report 17336175 (Version 1)
Quarter: 2020Q1

REPORT INFORMATION
  Report Type: Spontaneous
  Country: CA (occurrence: CA)
  Receive Date: 20200129
  Receipt Date: 20200129
  Transmission Date: 20200409
  Serious: Yes (Other)
  Sender: FDA-Public Use
  Company Number: CA-ORION CORPORATION ORION PHARMA-TREX2019-1228

PATIENT
  Sex: Female

DRUGS (1)
  1. METHOTREXATE (TRADE NAME UNKNOWN) [Suspect]
     Active Substance: METHOTREXATE
     Indication: PSORIATIC ARTHROPATHY
     Dosage: REDUCED UNTIL STOPPED
     Route: 065
     Dates: start: 201509, end: 201807

REACTIONS (4)
  - Drug intolerance [Unknown]
  - Adverse event [Unknown]
  - Hepatic cirrhosis [Unknown]
  - Drug hypersensitivity [Unknown]
